FAERS Safety Report 18568323 (Version 3)
Quarter: 2025Q2

REPORT INFORMATION
  Report Type: Spontaneous
  Country: FI (occurrence: FI)
  Receive Date: 20201202
  Receipt Date: 20250420
  Transmission Date: 20250716
  Serious: Yes (Congenital Anomaly)
  Sender: JOHNSON AND JOHNSON
  Company Number: None

PATIENT
  Sex: Female

DRUGS (9)
  1. REMICADE [Suspect]
     Active Substance: INFLIXIMAB
     Indication: Oligoarthritis
     Route: 064
     Dates: start: 201906, end: 20200403
  2. CIMZIA [Suspect]
     Active Substance: CERTOLIZUMAB PEGOL
     Indication: Product used for unknown indication
     Route: 064
     Dates: start: 20200605, end: 202008
  3. FOLIC ACID [Concomitant]
     Active Substance: FOLIC ACID
     Indication: Product used for unknown indication
     Route: 064
  4. FOLIC ACID [Concomitant]
     Active Substance: FOLIC ACID
     Dosage: 5MG,WEEKLY
     Route: 064
  5. IMUREL [Concomitant]
     Indication: Product used for unknown indication
     Route: 064
  6. HYDROXYCHLOROQUINE SULFATE [Concomitant]
     Active Substance: HYDROXYCHLOROQUINE SULFATE
     Indication: Product used for unknown indication
     Dosage: 300,MG,DAILY
     Route: 064
  7. PREDNISOLONE [Concomitant]
     Active Substance: PREDNISOLONE
     Indication: Product used for unknown indication
     Dosage: 5,MG,DAILY
     Route: 064
  8. LEVOTHYROXINE [Concomitant]
     Active Substance: LEVOTHYROXINE
     Indication: Product used for unknown indication
     Route: 064
  9. LEVOTHYROXINE [Concomitant]
     Active Substance: LEVOTHYROXINE
     Route: 064

REACTIONS (18)
  - Abortion induced [Recovered/Resolved with Sequelae]
  - Renal hypoplasia [Recovered/Resolved with Sequelae]
  - Ventricular septal defect [Recovered/Resolved with Sequelae]
  - Roberts syndrome [Recovered/Resolved with Sequelae]
  - CHARGE syndrome [Recovered/Resolved with Sequelae]
  - Pulmonary malformation [Recovered/Resolved with Sequelae]
  - Congenital ureteric anomaly [Recovered/Resolved with Sequelae]
  - VACTERL syndrome [Recovered/Resolved with Sequelae]
  - Uterine hypoplasia [Recovered/Resolved with Sequelae]
  - Congenital musculoskeletal disorder [Recovered/Resolved with Sequelae]
  - Single umbilical artery [Recovered/Resolved with Sequelae]
  - Congenital cardiovascular anomaly [Recovered/Resolved with Sequelae]
  - Ear malformation [Recovered/Resolved with Sequelae]
  - Congenital intestinal malformation [Recovered/Resolved with Sequelae]
  - Anal atresia [Recovered/Resolved with Sequelae]
  - Thrombocytopenia-absent radius syndrome [Recovered/Resolved with Sequelae]
  - Congenital jaw malformation [Recovered/Resolved with Sequelae]
  - Foetal exposure during pregnancy [Recovered/Resolved with Sequelae]

NARRATIVE: CASE EVENT DATE: 20200101
